FAERS Safety Report 7985965-3 (Version None)
Quarter: 2011Q4

REPORT INFORMATION
  Report Type: 
  Country: None (occurrence: None)
  Receive Date: 20111216
  Receipt Date: 20111213
  Transmission Date: 20120403
  Serious: Yes (Hospitalization)
  Sender: FDA-Public Use
  Company Number: US-MERCK-1112USA01629

PATIENT
  Age: 83 Year
  Sex: Male
  Weight: 94 kg

DRUGS (13)
  1. ASPIRIN [Concomitant]
     Route: 065
  2. FOLIC ACID [Concomitant]
     Route: 065
  3. SELENIUM (UNSPECIFIED) [Concomitant]
     Route: 065
  4. PRINIVIL [Suspect]
     Route: 048
     Dates: start: 20111127, end: 20111127
  5. PROVENGE [Suspect]
     Route: 042
     Dates: start: 20111114, end: 20111114
  6. ASACOL [Concomitant]
     Route: 065
  7. DENOSUMAB [Concomitant]
     Route: 065
  8. AMLODIPINE [Concomitant]
     Route: 065
  9. ATENOLOL [Concomitant]
     Route: 065
  10. PROVENGE [Suspect]
     Indication: PROSTATE CANCER METASTATIC
     Route: 042
     Dates: start: 20111031, end: 20111031
  11. SPIRONOLACTONE [Suspect]
     Route: 065
     Dates: end: 20111127
  12. LUPRON [Concomitant]
     Route: 065
  13. CITRACAL + D [Concomitant]
     Route: 065

REACTIONS (3)
  - HYPERKALAEMIA [None]
  - BACTERAEMIA [None]
  - ATRIAL FIBRILLATION [None]
